FAERS Safety Report 7483172-4 (Version None)
Quarter: 2011Q2

REPORT INFORMATION
  Report Type: 
  Country: None (occurrence: None)
  Receive Date: 20110516
  Receipt Date: 20101021
  Transmission Date: 20111010
  Serious: No
  Sender: FDA-Public Use
  Company Number: US-AMGEN-KDL437826

PATIENT
  Sex: Male

DRUGS (16)
  1. SENSIPAR [Suspect]
     Dosage: 90 MG, QD
     Dates: start: 20100101
  2. EPOGEN [Concomitant]
     Indication: RENAL FAILURE CHRONIC
  3. SENSIPAR [Suspect]
     Indication: HYPERPARATHYROIDISM SECONDARY
     Dosage: 90 MG, QD
     Route: 048
     Dates: start: 20091201
  4. LITHIUM [Concomitant]
     Dosage: UNK UNK, UNK
  5. SEVELAMER [Concomitant]
     Dosage: 800 MG, UNK
     Route: 048
  6. VENTOLIN [Concomitant]
  7. VYTORIN [Concomitant]
  8. VITAMIN A [Concomitant]
  9. TORSEMIDE [Concomitant]
  10. LEVOTHYROXINE SODIUM [Concomitant]
  11. UNSPECIFIED MEDICATION [Concomitant]
  12. ADVAIR DISKUS 100/50 [Concomitant]
  13. MUCINEX [Concomitant]
  14. PARICALCITOL [Concomitant]
     Dosage: 6 MG, 3 TIMES/WK
  15. ALLOPURINOL [Concomitant]
  16. HEPARIN [Concomitant]

REACTIONS (7)
  - ANTIPSYCHOTIC DRUG LEVEL BELOW THERAPEUTIC [None]
  - DRUG ADMINISTRATION ERROR [None]
  - DRUG INEFFECTIVE [None]
  - BLOOD PARATHYROID HORMONE INCREASED [None]
  - MALAISE [None]
  - INHIBITORY DRUG INTERACTION [None]
  - POLYMEDICATION [None]
